FAERS Safety Report 10884853 (Version 1)
Quarter: 2015Q1

REPORT INFORMATION
  Report Type: Spontaneous
  Country: FR (occurrence: FR)
  Receive Date: 20150304
  Receipt Date: 20150304
  Transmission Date: 20150721
  Serious: Yes (Hospitalization)
  Sender: FDA-Public Use
  Company Number: FR-JNJFOC-20150212029

PATIENT
  Age: 54 Year
  Sex: Female

DRUGS (18)
  1. TRIATEC [Concomitant]
     Active Substance: RAMIPRIL
     Dosage: 2.5 MG PER DAY 1-0-0
     Route: 048
  2. SPORANOX [Suspect]
     Active Substance: ITRACONAZOLE\SODIUM CHLORIDE
     Indication: ASPERGILLUS INFECTION
     Dosage: 300 MOL A DAY
     Route: 048
     Dates: start: 201410, end: 20150102
  3. CALCIDIA [Concomitant]
     Active Substance: CALCIUM POLYCARBOPHIL
     Dosage: 1.5 G 0-1-0
     Route: 065
  4. TOCO [Concomitant]
     Active Substance: UNSPECIFIED INGREDIENT
     Dosage: 500 0-1-0
     Route: 065
  5. TRANSIPEG [Concomitant]
     Active Substance: POLYETHYLENE GLYCOL 3350
     Route: 065
  6. LANSOYL [Concomitant]
     Active Substance: MINERAL OIL
     Dosage: WITHOUT SUGAR
     Route: 065
  7. OXYNORM [Concomitant]
     Active Substance: OXYCODONE HYDROCHLORIDE
     Indication: PAIN
     Route: 065
  8. DEDROGYL [Concomitant]
     Active Substance: CALCIFEDIOL
     Dosage: 10 DROPS IN THE MORNING
     Route: 048
  9. OXYCONTIN [Concomitant]
     Active Substance: OXYCODONE HYDROCHLORIDE
     Dosage: 30 MG 1-0-1
     Route: 065
  10. CORTANCYL [Concomitant]
     Active Substance: PREDNISONE
     Route: 048
  11. SEREVENT DISKUS [Concomitant]
     Active Substance: SALMETEROL XINAFOATE
     Dosage: 50 MCG PER DOSE 1 PUFF IN THE MORNING AND IN THE EVENING
     Route: 055
  12. MAG 2 [Concomitant]
     Active Substance: MAGNESIUM CHLORIDE
     Dosage: WITHOUT SUGAR 122 MG/10 ML 0-1-0
     Route: 065
  13. LASILIX [Concomitant]
     Active Substance: FUROSEMIDE
     Dosage: 500 MG 1/2 -1/2 - 0
     Route: 048
  14. DOLIPRANE [Concomitant]
     Active Substance: ACETAMINOPHEN
     Route: 065
  15. MOPRAL [Concomitant]
     Active Substance: OMEPRAZOLE SODIUM
     Dosage: 20 MG 0-0-1
     Route: 048
  16. LAMALINE [Concomitant]
     Active Substance: ACETAMINOPHEN\CAFFEINE\OPIUM
     Indication: PAIN
     Dosage: 2 CAPSULES 3 TIMES PER DAY
     Route: 065
  17. ISOPTIN [Concomitant]
     Active Substance: VERAPAMIL HYDROCHLORIDE
     Route: 048
     Dates: start: 201410
  18. VENTOLINE INHALER [Concomitant]
     Dosage: (RESPIRATORY) 2 PUFFS IN THE MORNING AND EVENING IF REQUESTED
     Route: 055

REACTIONS (1)
  - Agranulocytosis [Recovered/Resolved]

NARRATIVE: CASE EVENT DATE: 20150102
